FAERS Safety Report 22987563 (Version 6)
Quarter: 2024Q4

REPORT INFORMATION
  Report Type: Report from Study
  Country: KR (occurrence: KR)
  Receive Date: 20230926
  Receipt Date: 20241211
  Transmission Date: 20250115
  Serious: Yes (Other)
  Sender: OTSUKA
  Company Number: KR-OTSUKA-2023_024830

PATIENT
  Age: 52 Year
  Sex: Female

DRUGS (43)
  1. TOLVAPTAN [Suspect]
     Active Substance: TOLVAPTAN
     Indication: Congenital cystic kidney disease
     Dosage: 45 MG, QD
     Route: 048
     Dates: start: 20200918, end: 20200929
  2. TOLVAPTAN [Suspect]
     Active Substance: TOLVAPTAN
     Dosage: 15 MG, QD
     Route: 048
     Dates: start: 20200918, end: 20200929
  3. TOLVAPTAN [Suspect]
     Active Substance: TOLVAPTAN
     Dosage: 60 MG, QD
     Route: 048
     Dates: start: 20200930, end: 20201007
  4. TOLVAPTAN [Suspect]
     Active Substance: TOLVAPTAN
     Dosage: 30 MG, QD
     Route: 048
     Dates: start: 20200930, end: 20201007
  5. TOLVAPTAN [Suspect]
     Active Substance: TOLVAPTAN
     Dosage: 90 MG, QD
     Route: 048
     Dates: start: 20201008
  6. TOLVAPTAN [Suspect]
     Active Substance: TOLVAPTAN
     Dosage: 30 MG, QD
     Route: 048
     Dates: start: 20201008
  7. FIMASARTAN [Concomitant]
     Active Substance: FIMASARTAN
     Indication: Hypertension
     Dosage: UNK
     Route: 048
  8. CIPROFLOXACIN [Concomitant]
     Active Substance: CIPROFLOXACIN
     Indication: Peritonitis
     Dosage: 400 MG, QD
     Route: 042
     Dates: start: 20200912, end: 20200924
  9. ACETAMINOPHEN [Concomitant]
     Active Substance: ACETAMINOPHEN
     Indication: Peritonitis
     Dosage: 1 G, QD
     Route: 042
     Dates: start: 20200912, end: 20200913
  10. ACETAMINOPHEN [Concomitant]
     Active Substance: ACETAMINOPHEN
     Dosage: 0.5 G, QD
     Route: 042
     Dates: start: 20200918, end: 20200924
  11. ACETAMINOPHEN [Concomitant]
     Active Substance: ACETAMINOPHEN
     Dosage: 1 G, QD
     Route: 042
     Dates: start: 20200929, end: 20201001
  12. ACETAMINOPHEN [Concomitant]
     Active Substance: ACETAMINOPHEN
     Dosage: 1 G, QD
     Route: 042
     Dates: start: 20201004, end: 20201004
  13. ACETAMINOPHEN [Concomitant]
     Active Substance: ACETAMINOPHEN
     Dosage: 1 G, QD
     Route: 042
     Dates: start: 20201006, end: 20201006
  14. ACETAMINOPHEN [Concomitant]
     Active Substance: ACETAMINOPHEN
     Indication: Sepsis
     Dosage: 3 DF, QD
     Route: 048
     Dates: start: 20200914, end: 20200915
  15. METOCLOPRAMIDE HYDROCHLORIDE [Concomitant]
     Active Substance: METOCLOPRAMIDE HYDROCHLORIDE
     Indication: Peritonitis
     Dosage: 10 MG, QD
     Route: 042
     Dates: start: 20200912, end: 20200912
  16. TRAMADOL HYDROCHLORIDE [Concomitant]
     Active Substance: TRAMADOL HYDROCHLORIDE
     Indication: Peritonitis
     Dosage: 1 DF, QD (1 CAP/DAY)
     Route: 048
     Dates: start: 20201014, end: 20201014
  17. TRAMADOL HYDROCHLORIDE [Concomitant]
     Active Substance: TRAMADOL HYDROCHLORIDE
     Dosage: 1 DF, QD (1 CAP/DAY)
     Route: 048
     Dates: start: 20200917, end: 20200918
  18. TRAMADOL HYDROCHLORIDE [Concomitant]
     Active Substance: TRAMADOL HYDROCHLORIDE
     Dosage: 1 DF, QD (1 CAP/DAY)
     Route: 048
     Dates: start: 20200921, end: 20200921
  19. TRAMADOL HYDROCHLORIDE [Concomitant]
     Active Substance: TRAMADOL HYDROCHLORIDE
     Dosage: 1 DF, QD (1 CAP/DAY)
     Route: 048
     Dates: start: 20201006, end: 20201006
  20. TRAMADOL HYDROCHLORIDE [Concomitant]
     Active Substance: TRAMADOL HYDROCHLORIDE
     Indication: Peritonitis
     Dosage: 1 DF, QD (1 AMPLE/DAY)
     Route: 042
     Dates: start: 20200914, end: 20200915
  21. MONTMORILLONITE [Concomitant]
     Active Substance: MONTMORILLONITE
     Indication: Sepsis
     Dosage: 1 DF, QD (1 PKG/DAY)
     Route: 048
     Dates: start: 20200913, end: 20200913
  22. CIMETROPIUM BROMIDE [Concomitant]
     Active Substance: CIMETROPIUM BROMIDE
     Indication: Gastrointestinal disorder prophylaxis
     Dosage: 1 DF, QD (1 AMPLE/DAY)
     Route: 042
     Dates: start: 20200914, end: 20200914
  23. MEPERIDINE HYDROCHLORIDE [Concomitant]
     Active Substance: MEPERIDINE HYDROCHLORIDE
     Indication: Peritonitis
     Dosage: 25 MG, QD
     Route: 042
     Dates: start: 20200914, end: 20200914
  24. SODIUM CHLORIDE [Concomitant]
     Active Substance: SODIUM CHLORIDE
     Indication: Peritonitis
     Dosage: 960 ML, QD
     Route: 042
     Dates: start: 20200911, end: 20200916
  25. SODIUM CHLORIDE [Concomitant]
     Active Substance: SODIUM CHLORIDE
     Dosage: 1 L, QD
     Route: 042
     Dates: start: 20200921, end: 20200922
  26. FENTANYL [Concomitant]
     Active Substance: FENTANYL
     Indication: Peritonitis
     Dosage: 4 ?G, QD
     Route: 061
     Dates: start: 20200915, end: 20200920
  27. FENTANYL [Concomitant]
     Active Substance: FENTANYL
     Dosage: 8.33 ?G, QD
     Route: 061
     Dates: start: 20200921
  28. CEFAZOLIN SODIUM [Concomitant]
     Active Substance: CEFAZOLIN SODIUM
     Indication: Sepsis
     Dosage: 1 G, QD
     Route: 042
     Dates: start: 20200921, end: 20200921
  29. CEFAZOLIN SODIUM [Concomitant]
     Active Substance: CEFAZOLIN SODIUM
     Dosage: 2 G, QD
     Route: 042
     Dates: start: 20200922, end: 20200924
  30. CEFOTAXIME SODIUM [Concomitant]
     Active Substance: CEFOTAXIME SODIUM
     Indication: Sepsis
     Dosage: 4 G, QD
     Route: 042
     Dates: start: 20200925, end: 20200928
  31. CEFOTAXIME SODIUM [Concomitant]
     Active Substance: CEFOTAXIME SODIUM
     Dosage: 6 G, QD
     Route: 042
     Dates: start: 20200929, end: 20201017
  32. FUROSEMIDE [Concomitant]
     Active Substance: FUROSEMIDE
     Indication: Congenital cystic kidney disease
     Dosage: 40 MG, QD
     Route: 048
     Dates: start: 20200921, end: 20201028
  33. FUROSEMIDE [Concomitant]
     Active Substance: FUROSEMIDE
     Dosage: 60 MG, QD
     Route: 048
     Dates: start: 20200929, end: 20201002
  34. FUROSEMIDE [Concomitant]
     Active Substance: FUROSEMIDE
     Dosage: 40 MG, QD
     Route: 048
     Dates: start: 20201003, end: 20201004
  35. FUROSEMIDE [Concomitant]
     Active Substance: FUROSEMIDE
     Dosage: 80 MG, QD
     Route: 048
     Dates: start: 20201005, end: 20241006
  36. FUROSEMIDE [Concomitant]
     Active Substance: FUROSEMIDE
     Dosage: 100 MG, QD
     Route: 048
     Dates: start: 20201007, end: 20201022
  37. FUROSEMIDE [Concomitant]
     Active Substance: FUROSEMIDE
     Dosage: 80 MG, QD
     Route: 048
     Dates: start: 20201023
  38. SODIUM BICARBONATE [Concomitant]
     Active Substance: SODIUM BICARBONATE
     Indication: Gastrointestinal disorder prophylaxis
     Dosage: 3 DF, QD (3TAB/DAY)
     Route: 048
     Dates: start: 20200922, end: 20201004
  39. SPIRONOLACTONE [Concomitant]
     Active Substance: SPIRONOLACTONE
     Indication: Congenital cystic kidney disease
     Dosage: 12.5 MG, QD
     Route: 048
     Dates: start: 20201003, end: 20201003
  40. SPIRONOLACTONE [Concomitant]
     Active Substance: SPIRONOLACTONE
     Dosage: 25 MG, QD
     Route: 048
     Dates: start: 20201004, end: 20201004
  41. SPIRONOLACTONE [Concomitant]
     Active Substance: SPIRONOLACTONE
     Dosage: 12.5 MG, QD
     Route: 048
     Dates: start: 20201006, end: 20201006
  42. FERROUS SULFATE MONOHYDRATE [Concomitant]
     Active Substance: FERROUS SULFATE MONOHYDRATE
     Indication: Anaemia of chronic disease
     Dosage: 2 DF, QD
     Route: 048
     Dates: start: 20200915, end: 20200915
  43. ALBUMIN HUMAN [Concomitant]
     Active Substance: ALBUMIN HUMAN
     Indication: Hypoalbuminaemia
     Dosage: 100 ML, QD
     Route: 042
     Dates: start: 20200921, end: 20200923

REACTIONS (2)
  - Hyperkalaemia [Recovered/Resolved]
  - Hypokalaemia [Recovered/Resolved]

NARRATIVE: CASE EVENT DATE: 20200922
